FAERS Safety Report 8598703-0 (Version None)
Quarter: 2012Q3

REPORT INFORMATION
  Report Type: 
  Country: None (occurrence: None)
  Receive Date: 20120816
  Receipt Date: 20120808
  Transmission Date: 20120928
  Serious: Yes (Death)
  Sender: FDA-Public Use
  Company Number: JP-ROCHE-1100737

PATIENT
  Age: 69 Year
  Sex: Male

DRUGS (11)
  1. FLUOROURACIL [Concomitant]
     Dosage: DOSAGE IS UNCERTAIN.
     Route: 040
  2. FLUOROURACIL [Concomitant]
     Dosage: DOSAGE IS UNCERTAIN.
     Route: 041
  3. LEVOLEUCOVORIN CALCIUM [Concomitant]
     Indication: RECTAL CANCER
     Route: 041
  4. AVASTIN [Suspect]
     Indication: RECTAL CANCER
     Route: 041
  5. FLUOROURACIL [Concomitant]
     Indication: RECTAL CANCER
     Route: 040
  6. FLUOROURACIL [Concomitant]
     Dosage: DOSAGE IS UNCERTAIN.
     Route: 040
  7. FLUOROURACIL [Concomitant]
     Route: 041
  8. FLUOROURACIL [Concomitant]
     Dosage: DOSAGE IS UNCERTAIN.
     Route: 041
  9. IRINOTECAN HYDROCHLORIDE [Concomitant]
     Indication: RECTAL CANCER
     Dosage: DOSAGE IS UNCERTAIN.
     Route: 041
  10. OXALIPLATIN [Concomitant]
     Indication: RECTAL CANCER
     Route: 041
  11. LEVOLEUCOVORIN CALCIUM [Concomitant]
     Dosage: DOSAGE IS UNCERTAIN.
     Route: 041

REACTIONS (2)
  - WHITE BLOOD CELL COUNT DECREASED [None]
  - RECTAL CANCER [None]
